FAERS Safety Report 19149845 (Version 1)
Quarter: 2021Q2

REPORT INFORMATION
  Report Type: Spontaneous
  Country: IT (occurrence: IT)
  Receive Date: 20210417
  Receipt Date: 20210417
  Transmission Date: 20210717
  Serious: Yes (Death, Other)
  Sender: FDA-Public Use
  Company Number: IT-ACCORD-222449

PATIENT
  Age: 71 Year
  Sex: Male

DRUGS (1)
  1. PACLITAXEL/PACLITAXEL LIPOSOME [Suspect]
     Active Substance: PACLITAXEL
     Indication: INTESTINAL METASTASIS
     Dates: start: 2018, end: 2018

REACTIONS (2)
  - Melaena [Unknown]
  - Anaemia [Unknown]

NARRATIVE: CASE EVENT DATE: 2018
